FAERS Safety Report 7504329-X (Version None)
Quarter: 2011Q2

REPORT INFORMATION
  Report Type: 
  Country: None (occurrence: None)
  Receive Date: 20110404
  Receipt Date: 20101103
  Transmission Date: 20111010
  Serious: Yes (Death, Other)
  Sender: FDA-Public Use
  Company Number: 011845

PATIENT
  Age: 23 Year
  Sex: Male

DRUGS (3)
  1. VALGANCICLOVIR HCL [Concomitant]
  2. BUSULFEX [Suspect]
     Indication: BONE MARROW CONDITIONING REGIMEN
     Dosage: INTRAVENOUS
     Route: 042
  3. CYCLOPHOSPHAMIDE [Concomitant]

REACTIONS (2)
  - VENOOCCLUSIVE LIVER DISEASE [None]
  - CYTOMEGALOVIRUS INFECTION [None]
